FAERS Safety Report 15827510 (Version 1)
Quarter: 2019Q1

REPORT INFORMATION
  Report Type: Spontaneous
  Country: US (occurrence: US)
  Receive Date: 20190115
  Receipt Date: 20190115
  Transmission Date: 20190417
  Serious: Yes (Hospitalization)
  Sender: FDA-Public Use
  Company Number: US-AKRON, INC.-2061207

PATIENT
  Age: 52 Year
  Sex: Male

DRUGS (3)
  1. FLUOXETINE HCI ORAL SOLUTION [Suspect]
     Active Substance: FLUOXETINE HYDROCHLORIDE
  2. LISDEXAMFETAMINE [Suspect]
     Active Substance: LISDEXAMFETAMINE
  3. MELATONIN [Suspect]
     Active Substance: MELATONIN

REACTIONS (3)
  - Thinking abnormal [Recovering/Resolving]
  - Dysarthria [Recovering/Resolving]
  - Choreoathetosis [Recovering/Resolving]
